FAERS Safety Report 20724015 (Version 1)
Quarter: 2022Q2

REPORT INFORMATION
  Report Type: Spontaneous
  Country: US (occurrence: US)
  Receive Date: 20220419
  Receipt Date: 20220419
  Transmission Date: 20220721
  Serious: No
  Sender: FDA-Public Use
  Company Number: US-ELI_LILLY_AND_COMPANY-US202204007808

PATIENT
  Sex: Female

DRUGS (2)
  1. FORTEO [Suspect]
     Active Substance: TERIPARATIDE
     Indication: Osteoporosis
     Dosage: 250 UG, UNKNOWN
     Route: 058
     Dates: start: 20220302
  2. FORTEO [Suspect]
     Active Substance: TERIPARATIDE
     Dosage: 250 UG, UNKNOWN
     Route: 058
     Dates: start: 20220302

REACTIONS (4)
  - Bone pain [Unknown]
  - Limb discomfort [Not Recovered/Not Resolved]
  - Headache [Not Recovered/Not Resolved]
  - Pain [Not Recovered/Not Resolved]
